FAERS Safety Report 11786803 (Version 2)
Quarter: 2016Q1

REPORT INFORMATION
  Report Type: Spontaneous
  Country: DE (occurrence: DE)
  Receive Date: 20151130
  Receipt Date: 20160107
  Transmission Date: 20160525
  Serious: Yes (Hospitalization)
  Sender: FDA-Public Use
  Company Number: DE-BAYER-2015-475226

PATIENT
  Age: 51 Year
  Sex: Female
  Weight: 125 kg

DRUGS (4)
  1. GADOVIST [Suspect]
     Active Substance: GADOBUTROL
  2. L-THYROXIN [Concomitant]
     Active Substance: LEVOTHYROXINE SODIUM
     Dosage: 175 MG, UNK
  3. VIGANTOLETTEN [COLECALCIFEROL] [Concomitant]
  4. OMEPRAZOL [Concomitant]
     Active Substance: OMEPRAZOLE
     Dosage: 20 MG, UNK

REACTIONS (3)
  - Confusional state [Recovering/Resolving]
  - Hot flush [Recovering/Resolving]
  - Generalised erythema [Recovering/Resolving]
